FAERS Safety Report 7644120-7 (Version None)
Quarter: 2011Q3

REPORT INFORMATION
  Report Type: 
  Country: None (occurrence: None)
  Receive Date: 20110728
  Receipt Date: 20110728
  Transmission Date: 20111222
  Serious: No
  Sender: FDA-Public Use
  Company Number: None

PATIENT
  Sex: Female

DRUGS (1)
  1. ENBREL [Suspect]
     Dosage: 50 MG B/W SQ
     Route: 058
     Dates: start: 20110412, end: 20110705

REACTIONS (1)
  - WHITE BLOOD CELL COUNT INCREASED [None]
